FAERS Safety Report 15703685 (Version 2)
Quarter: 2019Q1

REPORT INFORMATION
  Report Type: Spontaneous
  Country: US (occurrence: US)
  Receive Date: 20181210
  Receipt Date: 20190110
  Transmission Date: 20190417
  Serious: No
  Sender: FDA-Public Use
  Company Number: US-GLAXOSMITHKLINE-US2018215066

PATIENT
  Sex: Male
  Weight: 80.27 kg

DRUGS (1)
  1. NUCALA [Suspect]
     Active Substance: MEPOLIZUMAB
     Indication: PRODUCT USED FOR UNKNOWN INDICATION
     Dosage: 300 MG, UNK
     Route: 058

REACTIONS (7)
  - Arthralgia [Unknown]
  - Tendon pain [Unknown]
  - Incorrect dose administered [Unknown]
  - Underdose [Unknown]
  - Cough [Unknown]
  - Upper-airway cough syndrome [Unknown]
  - Back pain [Unknown]
